FAERS Safety Report 21409524 (Version 1)
Quarter: 2022Q4

REPORT INFORMATION
  Report Type: Spontaneous
  Country: US (occurrence: None)
  Receive Date: 20221003
  Receipt Date: 20221003
  Transmission Date: 20230113
  Serious: No
  Sender: FDA-Public Use
  Company Number: None

PATIENT
  Age: 61 Year
  Sex: Female

DRUGS (1)
  1. ADEMPAS [Suspect]
     Active Substance: RIOCIGUAT
     Indication: Pulmonary arterial hypertension
     Dosage: 2MG TID ORAL
     Route: 048
     Dates: start: 20220825

REACTIONS (2)
  - Hypoglycaemia [None]
  - Abdominal pain upper [None]

NARRATIVE: CASE EVENT DATE: 20221001
